FAERS Safety Report 10050769 (Version 1)
Quarter: 2014Q2

REPORT INFORMATION
  Report Type: Spontaneous
  Country: US (occurrence: US)
  Receive Date: 20140401
  Receipt Date: 20140401
  Transmission Date: 20141212
  Serious: No
  Sender: FDA-Public Use
  Company Number: US-ASTRAZENECA-2013SE74048

PATIENT
  Age: 48 Year
  Sex: Female
  Weight: 77.1 kg

DRUGS (21)
  1. NEXIUM [Suspect]
     Indication: GASTROOESOPHAGEAL REFLUX DISEASE
     Route: 048
     Dates: start: 201201
  2. POTASSIUM CO MICRO ER [Concomitant]
     Route: 048
     Dates: start: 2013
  3. LASIX [Concomitant]
     Route: 048
     Dates: start: 2013
  4. FENTANYL PATCH [Concomitant]
     Dosage: 12MCG Q3D
     Route: 061
     Dates: start: 201309
  5. LIPITOR [Concomitant]
     Route: 048
  6. CACLIUM CITRATE [Concomitant]
     Route: 048
  7. GABAPENTIN [Concomitant]
     Route: 048
  8. FORTICAL [Concomitant]
     Route: 048
  9. ROBINOL [Concomitant]
     Route: 048
  10. ESTRADIOL [Concomitant]
     Route: 048
     Dates: start: 2001
  11. SINGULAIR [Concomitant]
     Route: 048
  12. ASTEPRO [Concomitant]
     Dosage: 1 SPRAY EACH NOSTRIL BID
     Route: 048
  13. VITAMIN B12 [Concomitant]
     Route: 048
  14. FISH OIL [Concomitant]
     Route: 048
  15. GLUCOSAMIN CHONDROYNTIN [Concomitant]
     Route: 048
  16. ANUCORT [Concomitant]
     Route: 054
  17. ALIGN [Concomitant]
     Route: 048
  18. HIZENTRA [Concomitant]
     Route: 058
  19. BACLOFEN [Concomitant]
     Route: 048
  20. PROZAC [Concomitant]
     Route: 048
  21. XANAX [Concomitant]
     Route: 048

REACTIONS (4)
  - Gastrooesophageal reflux disease [Unknown]
  - Confusional state [Unknown]
  - Nausea [Unknown]
  - Vomiting [Unknown]
